FAERS Safety Report 15492053 (Version 1)
Quarter: 2018Q4

REPORT INFORMATION
  Report Type: Spontaneous
  Country: DE (occurrence: DE)
  Receive Date: 20181012
  Receipt Date: 20181012
  Transmission Date: 20190205
  Serious: Yes (Other)
  Sender: FDA-Public Use
  Company Number: DE-TEVA-2018-DE-961647

PATIENT
  Age: 55 Year
  Sex: Male

DRUGS (3)
  1. COPIDOGREL HEUMANN [Suspect]
     Active Substance: CLOPIDOGREL BISULFATE
     Dates: start: 201803
  2. SIMVASTATIN-RATIOPHARM 20 MG FILMTABLETTEN [Suspect]
     Active Substance: SIMVASTATIN
     Indication: BLOOD CHOLESTEROL INCREASED
     Dosage: 20 MILLIGRAM DAILY;
     Route: 048
     Dates: start: 201803
  3. ASS 100 (1A PHARMA) [Concomitant]
     Dates: start: 201803

REACTIONS (3)
  - Hypoaesthesia [Not Recovered/Not Resolved]
  - Polyneuropathy [Not Recovered/Not Resolved]
  - Paraesthesia [Not Recovered/Not Resolved]

NARRATIVE: CASE EVENT DATE: 2018
